FAERS Safety Report 6801130-7 (Version None)
Quarter: 2010Q2

REPORT INFORMATION
  Report Type: 
  Country: None (occurrence: None)
  Receive Date: 20100629
  Receipt Date: 20100617
  Transmission Date: 20101027
  Serious: Yes (Other)
  Sender: FDA-Public Use
  Company Number: BR-PFIZER INC-2010068091

PATIENT
  Age: 87 Year
  Sex: Female
  Weight: 71 kg

DRUGS (6)
  1. ZITHROMAX [Suspect]
     Dosage: 500 MG, UNK
     Route: 042
     Dates: start: 20100427
  2. ALDACTONE [Concomitant]
  3. CLEXANE [Concomitant]
  4. EFFEXOR [Concomitant]
  5. HYDROCORTISONE [Concomitant]
  6. ATLANSIL ^SANOFI WINTHROP^ [Concomitant]

REACTIONS (1)
  - PHLEBITIS [None]
